FAERS Safety Report 11026169 (Version 1)
Quarter: 2015Q2

REPORT INFORMATION
  Report Type: Spontaneous
  Country: US (occurrence: None)
  Receive Date: 20150413
  Receipt Date: 20150413
  Transmission Date: 20150821
  Serious: No
  Sender: FDA-Public Use
  Company Number: None

PATIENT
  Sex: Male

DRUGS (14)
  1. LIOTHYRONINE [Concomitant]
     Active Substance: LIOTHYRONINE
  2. ADVAIR DISKUS [Concomitant]
     Active Substance: FLUTICASONE PROPIONATE\SALMETEROL XINAFOATE
  3. HYDROCODONE/ACETAMINOPH [Concomitant]
     Active Substance: ACETAMINOPHEN\HYDROCODONE
  4. LEVOTHYROXIN TAB [Concomitant]
  5. LEUKINE [Concomitant]
     Active Substance: SARGRAMOSTIM
  6. IBRANCE [Suspect]
     Active Substance: PALBOCICLIB
     Indication: BREAST CANCER
     Route: 048
     Dates: start: 20150313
  7. ANDROGEL [Concomitant]
     Active Substance: TESTOSTERONE
  8. CHLORHEXIDINE [Concomitant]
     Active Substance: CHLORHEXIDINE
  9. IBRANCE CAP [Concomitant]
  10. SANCUSO TRANSDERMAL SYS [Concomitant]
  11. LIOTHYRONINE [Concomitant]
     Active Substance: LIOTHYRONINE
  12. METOPROLOL TAB [Concomitant]
  13. AMOXICILLIN. [Concomitant]
     Active Substance: AMOXICILLIN
  14. TESTOPEL MIS PELLETS [Concomitant]

REACTIONS (1)
  - Neutropenia [None]
